FAERS Safety Report 4620752-5 (Version None)
Quarter: 2005Q1

REPORT INFORMATION
  Report Type: 
  Country: None (occurrence: None)
  Receive Date: 20050325
  Receipt Date: 20050316
  Transmission Date: 20050727
  Serious: Yes (Disabling)
  Sender: FDA-Public Use
  Company Number: HQWYE169617MAR05

PATIENT
  Sex: 0

DRUGS (3)
  1. PROTONIX [Suspect]
     Dosage: 40 MG , ORAL
     Route: 048
  2. PROTONIX [Suspect]
     Dosage: INTRAVENOUS
     Route: 042
  3. . [Suspect]

REACTIONS (2)
  - DIABETES MELLITUS [None]
  - HYPERGLYCAEMIA [None]
